FAERS Safety Report 5393414-7 (Version None)
Quarter: 2007Q3

REPORT INFORMATION
  Report Type: 
  Country: None (occurrence: None)
  Receive Date: 20070720
  Receipt Date: 20070720
  Transmission Date: 20080115
  Serious: Yes (Other)
  Sender: FDA-Public Use
  Company Number: None

PATIENT
  Sex: Female

DRUGS (3)
  1. SINGULAIR [Suspect]
     Indication: RHINITIS ALLERGIC
     Dosage: 10MG PO
     Route: 048
     Dates: start: 20070710, end: 20070714
  2. ALLEGRA D-24 [Concomitant]
  3. NASONEX [Concomitant]

REACTIONS (1)
  - MYALGIA [None]
